FAERS Safety Report 16593932 (Version 1)
Quarter: 2019Q3

REPORT INFORMATION
  Report Type: Spontaneous
  Country: AT (occurrence: AT)
  Receive Date: 20190718
  Receipt Date: 20190718
  Transmission Date: 20191004
  Serious: Yes (Hospitalization, Other)
  Sender: FDA-Public Use
  Company Number: AT-MYLANLABS-2019M1067643

PATIENT
  Age: 50 Year
  Sex: Female

DRUGS (14)
  1. BIPERIDEN [Suspect]
     Active Substance: BIPERIDEN
     Indication: PRODUCT USED FOR UNKNOWN INDICATION
     Dosage: 8 MILLIGRAM
  2. LEPONEX [Suspect]
     Active Substance: CLOZAPINE
     Dosage: UNK
     Dates: start: 20190429, end: 20190505
  3. LEPONEX [Suspect]
     Active Substance: CLOZAPINE
     Dosage: 75 MILLIGRAM
     Dates: start: 20190508, end: 20190512
  4. PREGABALIN. [Suspect]
     Active Substance: PREGABALIN
     Indication: PRODUCT USED FOR UNKNOWN INDICATION
     Dosage: 400 MILLIGRAM
  5. RISPERDAL [Suspect]
     Active Substance: RISPERIDONE
     Indication: SCHIZOPHRENIA
     Dosage: 6 MILLIGRAM
  6. AGLANDIN [Suspect]
     Active Substance: TAMSULOSIN HYDROCHLORIDE
     Indication: PRODUCT USED FOR UNKNOWN INDICATION
     Dosage: 0.4 MILLIGRAM
  7. SEROQUEL [Suspect]
     Active Substance: QUETIAPINE FUMARATE
     Indication: PRODUCT USED FOR UNKNOWN INDICATION
     Dosage: 700 MILLIGRAM
  8. THYREX [Concomitant]
     Active Substance: LEVOTHYROXINE SODIUM
     Indication: PRODUCT USED FOR UNKNOWN INDICATION
     Dosage: 0.05 MILLIGRAM
  9. LEPONEX [Suspect]
     Active Substance: CLOZAPINE
     Dosage: 125 MILLIGRAM
     Dates: start: 20190506, end: 20190506
  10. INDERAL [Suspect]
     Active Substance: PROPRANOLOL HYDROCHLORIDE
     Indication: SCHIZOPHRENIA
     Dosage: UNK
  11. LEPONEX [Suspect]
     Active Substance: CLOZAPINE
     Indication: SCHIZOPHRENIA
     Dosage: UNK
     Dates: start: 20190423, end: 20190428
  12. PREGABALIN. [Suspect]
     Active Substance: PREGABALIN
     Dosage: 400 MILLIGRAM
     Dates: start: 2018, end: 20190428
  13. PREGABALIN. [Suspect]
     Active Substance: PREGABALIN
     Dosage: 600 MILLIGRAM
     Dates: start: 20190429, end: 20190512
  14. DELPRAL [Suspect]
     Active Substance: TIAPRIDE HYDROCHLORIDE
     Indication: SCHIZOPHRENIA
     Dosage: 200 MILLIGRAM
     Dates: start: 20190419, end: 20190513

REACTIONS (3)
  - Pneumonia [Unknown]
  - Delirium [Recovered/Resolved]
  - Dyskinesia [Recovering/Resolving]

NARRATIVE: CASE EVENT DATE: 20190505
